FAERS Safety Report 18613417 (Version 1)
Quarter: 2020Q4

REPORT INFORMATION
  Report Type: Spontaneous
  Country: ES (occurrence: ES)
  Receive Date: 20201214
  Receipt Date: 20201214
  Transmission Date: 20210114
  Serious: Yes (Hospitalization)
  Sender: FDA-Public Use
  Company Number: ES-ANIPHARMA-2020-ES-000161

PATIENT
  Age: 10 Year
  Sex: Female

DRUGS (1)
  1. PROPRANOLOL HCL TABLET (NON-SPECIFIC) [Suspect]
     Active Substance: PROPRANOLOL HYDROCHLORIDE
     Indication: LONG QT SYNDROME CONGENITAL
     Dosage: 30 MG/8 HOURS
     Route: 048

REACTIONS (2)
  - Torsade de pointes [Recovered/Resolved]
  - Drug level changed [Recovered/Resolved]
